FAERS Safety Report 4861516-7 (Version None)
Quarter: 2005Q4

REPORT INFORMATION
  Report Type: 
  Country: None (occurrence: None)
  Receive Date: 20051220
  Receipt Date: 20051214
  Transmission Date: 20060501
  Serious: Yes (Congenital Anomaly, Other)
  Sender: FDA-Public Use
  Company Number: NL-AVENTIS-200521038GDDC

PATIENT
  Age: 0 Year

DRUGS (1)
  1. CLOMID [Suspect]
     Route: 064
     Dates: start: 20011020

REACTIONS (2)
  - DRUG EXPOSURE DURING PREGNANCY [None]
  - HYPOPLASTIC LEFT HEART SYNDROME [None]
